FAERS Safety Report 17421080 (Version 3)
Quarter: 2020Q3

REPORT INFORMATION
  Report Type: Report from Study
  Country: GB (occurrence: GB)
  Receive Date: 20200214
  Receipt Date: 20200711
  Transmission Date: 20201102
  Serious: Yes (Other)
  Sender: FDA-Public Use
  Company Number: NVSC2020GB033010

PATIENT
  Sex: Female

DRUGS (1)
  1. COSENTYX [Suspect]
     Active Substance: SECUKINUMAB
     Indication: PSORIATIC ARTHROPATHY
     Dosage: 300 MG, QW (WEEK 0,1,2,3,4)
     Route: 058
     Dates: start: 20200201

REACTIONS (8)
  - Infection [Unknown]
  - Skin disorder [Unknown]
  - Erythema [Unknown]
  - Tonsillitis [Unknown]
  - Cellulitis [Unknown]
  - Malaise [Unknown]
  - Skin reaction [Unknown]
  - Peripheral swelling [Unknown]
